FAERS Safety Report 16070170 (Version 2)
Quarter: 2019Q1

REPORT INFORMATION
  Report Type: Report from Study
  Country: IT (occurrence: IT)
  Receive Date: 20190314
  Receipt Date: 20190322
  Transmission Date: 20190418
  Serious: Yes (Other)
  Sender: FDA-Public Use
  Company Number: IT-ACCORD-112313

PATIENT
  Age: 77 Year
  Sex: Male

DRUGS (10)
  1. GLUTATHIONE [Concomitant]
     Active Substance: GLUTATHIONE
  2. HERCEPTIN [Suspect]
     Active Substance: TRASTUZUMAB
     Indication: GASTRIC CANCER
     Route: 042
     Dates: start: 20180116, end: 20181011
  3. CISPLATIN. [Suspect]
     Active Substance: CISPLATIN
     Indication: GASTRIC CANCER
     Route: 042
     Dates: start: 20180109, end: 20180517
  4. COVERLAM [Concomitant]
     Active Substance: AMLODIPINE BESYLATE\PERINDOPRIL ARGININE
  5. CARDIOASPIRIN [Concomitant]
     Active Substance: ASPIRIN
  6. NOLPAZA [Concomitant]
     Active Substance: PANTOPRAZOLE SODIUM
  7. LIMICAN [Concomitant]
     Active Substance: ALIZAPRIDE HYDROCHLORIDE
  8. SOLDESAM [Concomitant]
     Active Substance: DEXAMETHASONE
  9. CALCIUM LEVOFOLINATE [Concomitant]
     Active Substance: LEVOLEUCOVORIN CALCIUM
  10. FLUOROURACIL. [Suspect]
     Active Substance: FLUOROURACIL
     Indication: GASTRIC CANCER
     Route: 041
     Dates: start: 20180109, end: 20180614

REACTIONS (4)
  - Leukopenia [Recovering/Resolving]
  - Thrombocytopenia [Recovering/Resolving]
  - Off label use [Unknown]
  - Neutropenia [Recovering/Resolving]

NARRATIVE: CASE EVENT DATE: 20180221
